FAERS Safety Report 5925797-0 (Version None)
Quarter: 2008Q4

REPORT INFORMATION
  Report Type: 
  Country: None (occurrence: None)
  Receive Date: 20081021
  Receipt Date: 20081020
  Transmission Date: 20090506
  Serious: Yes (Other)
  Sender: FDA-Public Use
  Company Number: US-ASTRAZENECA-2008UW08896

PATIENT
  Age: 51 Year
  Sex: Male
  Weight: 85.7 kg

DRUGS (4)
  1. SEROQUEL [Suspect]
     Indication: SLEEP DISORDER
     Dosage: VARIOUS INCLUDING BUT NOT LIMITED TO 200 MG, 300MG AND 600 MG
     Route: 048
     Dates: start: 20040101
  2. LEXAPRO [Concomitant]
     Dates: start: 20050101
  3. WELLBUTRIN SR [Concomitant]
     Dates: start: 20000101
  4. LORAZEPAM [Concomitant]
     Dates: start: 20000101

REACTIONS (5)
  - BLOOD CHOLESTEROL INCREASED [None]
  - BLOOD TRIGLYCERIDES INCREASED [None]
  - DIABETES MELLITUS [None]
  - DYSLIPIDAEMIA [None]
  - METABOLIC SYNDROME [None]
